FAERS Safety Report 10086374 (Version 1)
Quarter: 2014Q2

REPORT INFORMATION
  Report Type: Spontaneous
  Country: US (occurrence: None)
  Receive Date: 20140417
  Receipt Date: 20140417
  Transmission Date: 20141212
  Serious: Yes (Disabling, Other)
  Sender: FDA-Public Use
  Company Number: None

PATIENT
  Age: 14 Year
  Sex: Female
  Weight: 36.29 kg

DRUGS (1)
  1. BESIVANCE 0.6% BAUSCH AND LOMB [Suspect]
     Indication: EYE INFECTION
     Dosage: 1 DROP?FOUR TIMES DAILY?INTO THE EYE
     Dates: start: 20140415, end: 20140416

REACTIONS (8)
  - Eye inflammation [None]
  - Headache [None]
  - Nausea [None]
  - Ocular hyperaemia [None]
  - Eye pruritus [None]
  - Eye discharge [None]
  - Eyelid margin crusting [None]
  - Blindness [None]
